FAERS Safety Report 15371826 (Version 1)
Quarter: 2018Q3

REPORT INFORMATION
  Report Type: Report from Study
  Country: KR (occurrence: KR)
  Receive Date: 20180911
  Receipt Date: 20180911
  Transmission Date: 20181010
  Serious: Yes (Hospitalization)
  Sender: FDA-Public Use
  Company Number: KR-SAKK-2018SA226238AA

PATIENT
  Age: 56 Year
  Sex: Male

DRUGS (2)
  1. INSULIN GLARGINE [Suspect]
     Active Substance: INSULIN GLARGINE
     Indication: DIABETES MELLITUS
     Dosage: 16 U, QD
     Route: 058
     Dates: start: 201808
  2. INSULIN GLARGINE [Suspect]
     Active Substance: INSULIN GLARGINE
     Dosage: 18 U, QD
     Route: 058
     Dates: start: 201807, end: 201808

REACTIONS (3)
  - Hyperglycaemia [Recovered/Resolved]
  - Tinnitus [Not Recovered/Not Resolved]
  - Meniere^s disease [Not Recovered/Not Resolved]

NARRATIVE: CASE EVENT DATE: 201808
